FAERS Safety Report 11719985 (Version 3)
Quarter: 2015Q4

REPORT INFORMATION
  Report Type: Spontaneous
  Country: FR (occurrence: FR)
  Receive Date: 20151110
  Receipt Date: 20151201
  Transmission Date: 20160304
  Serious: Yes (Life-Threatening, Hospitalization)
  Sender: FDA-Public Use
  Company Number: FR-BAYER-2015-458327

PATIENT
  Age: 42 Year
  Sex: Female

DRUGS (6)
  1. ALPRAZOLAM. [Suspect]
     Active Substance: ALPRAZOLAM
     Dosage: IRREGULAR INTAKE
  2. ASPIRINE 500 MG NICHOLAS [Suspect]
     Active Substance: ASPIRIN
  3. AERIUS [Concomitant]
     Active Substance: DESLORATADINE
  4. PARACETAMOL [Suspect]
     Active Substance: ACETAMINOPHEN
     Dosage: IRREGULAR INTAKE
  5. CELESTAMINE [Concomitant]
     Active Substance: BETAMETHASONE\DEXCHLORPHENIRAMINE MALEATE
  6. SOLUPRED [PREDNISOLONE] [Concomitant]
     Active Substance: PREDNISOLONE

REACTIONS (27)
  - Pancytopenia [Recovering/Resolving]
  - Punctate keratitis [Recovering/Resolving]
  - Tooth loss [Recovering/Resolving]
  - Jaundice cholestatic [Recovering/Resolving]
  - Bronchial haemorrhage [Recovering/Resolving]
  - Septic shock [Recovering/Resolving]
  - Renal failure [Recovering/Resolving]
  - Urticaria [None]
  - Depression [Recovering/Resolving]
  - Asthenia [Recovering/Resolving]
  - Oral disorder [Recovering/Resolving]
  - Lower respiratory tract inflammation [Recovering/Resolving]
  - Cough [Recovering/Resolving]
  - Prurigo [Recovering/Resolving]
  - Respiratory failure [Recovering/Resolving]
  - Circulatory collapse [Recovering/Resolving]
  - Toxic epidermal necrolysis [Recovering/Resolving]
  - Skin exfoliation [Recovering/Resolving]
  - Vulval disorder [Recovering/Resolving]
  - Post-traumatic stress disorder [Recovering/Resolving]
  - Pneumonia bacterial [Recovering/Resolving]
  - Pyrexia [Recovering/Resolving]
  - Mucosal exfoliation [Recovering/Resolving]
  - Hyperbilirubinaemia [Recovering/Resolving]
  - Toxic skin eruption [Recovering/Resolving]
  - Adverse event [Recovering/Resolving]
  - Ulcerative keratitis [Recovering/Resolving]

NARRATIVE: CASE EVENT DATE: 201312
